FAERS Safety Report 11170447 (Version 2)
Quarter: 2015Q2

REPORT INFORMATION
  Report Type: Spontaneous
  Country: BE (occurrence: None)
  Receive Date: 20150604
  Receipt Date: 20150610
  Transmission Date: 20150821
  Serious: Yes (Hospitalization)
  Sender: FDA-Public Use
  Company Number: 2015FE01712

PATIENT
  Age: 28 Year
  Sex: Female

DRUGS (2)
  1. MENOPUR [Suspect]
     Active Substance: FOLLICLE STIMULATING HORMONE BETA POLYPEPTIDE\LUTROPIN ALFA
     Indication: PRODUCT USED FOR UNKNOWN INDICATION
  2. HORMONES [Suspect]
     Active Substance: UNSPECIFIED INGREDIENT
     Dosage: EVERY MORNING AND EVENING

REACTIONS (9)
  - Cold sweat [None]
  - Syncope [None]
  - Abdominal distension [None]
  - Injection site pain [None]
  - Asthenia [None]
  - Adnexal torsion [None]
  - Hydrometra [None]
  - Affect lability [None]
  - Pain [None]
